FAERS Safety Report 17432980 (Version 2)
Quarter: 2020Q1

REPORT INFORMATION
  Report Type: Spontaneous
  Country: US (occurrence: US)
  Receive Date: 20200219
  Receipt Date: 20200322
  Transmission Date: 20200409
  Serious: No
  Sender: FDA-Public Use
  Company Number: US-APOTEX-2020AP007507

PATIENT
  Sex: Female
  Weight: 58 kg

DRUGS (12)
  1. CHANTIX [Concomitant]
     Active Substance: VARENICLINE TARTRATE
     Indication: SMOKING CESSATION THERAPY
     Dosage: UNK, EVERY DAY DIFFERENT QUANTITY
     Route: 065
     Dates: start: 2007, end: 2008
  2. SERTRALINE [Concomitant]
     Active Substance: SERTRALINE HYDROCHLORIDE
     Indication: ANXIETY
     Dosage: 50 MG, QD AT BEDTIME
     Route: 065
     Dates: start: 201911
  3. HYDROCHLOROTHIAZIDE W/LISINOPRIL [Concomitant]
     Active Substance: HYDROCHLOROTHIAZIDE\LISINOPRIL
     Indication: BLOOD PRESSURE MEASUREMENT
     Dosage: 20/25 MG ONE TAB, QD
     Route: 065
     Dates: start: 1994
  4. NICOTINE. [Suspect]
     Active Substance: NICOTINE
     Indication: SMOKING CESSATION THERAPY
     Dosage: UNK
     Route: 065
     Dates: start: 2002
  5. LATANOPROST. [Concomitant]
     Active Substance: LATANOPROST
     Indication: GLAUCOMA
     Dosage: 1 GTT, QD, IN EVENING
     Route: 047
     Dates: start: 1994
  6. LEVOTHYROXINE. [Concomitant]
     Active Substance: LEVOTHYROXINE
     Indication: THYROID DISORDER
     Dosage: 1 DF, QD, 88 MICROGRAM ONE TAB DAILY
     Route: 065
     Dates: start: 1994
  7. LEVOBUNOLOL [Concomitant]
     Active Substance: LEVOBUNOLOL
     Indication: GLAUCOMA
     Dosage: 1 GTT, BID
     Route: 047
     Dates: start: 1994
  8. ASPIRIN                            /00002701/ [Concomitant]
     Active Substance: ASPIRIN
     Indication: ANTICOAGULANT THERAPY
     Dosage: 325 MG, AT BEDTIME
     Route: 065
     Dates: start: 2007
  9. VITAMIN D3 [Concomitant]
     Active Substance: CHOLECALCIFEROL
     Indication: BONE DISORDER
     Dosage: 2000 IU, QD IN MORNING
     Route: 065
  10. VITAMIN C [Concomitant]
     Active Substance: ASCORBIC ACID
     Indication: PRODUCT USED FOR UNKNOWN INDICATION
     Dosage: 1000 MG, QD
     Route: 065
     Dates: start: 2004
  11. FLUTICASONE. [Concomitant]
     Active Substance: FLUTICASONE
     Indication: ECZEMA
     Dosage: ONE APPLICATION, BID
     Route: 061
     Dates: start: 2010
  12. FLUTICASONE. [Concomitant]
     Active Substance: FLUTICASONE
     Indication: NASAL CONGESTION
     Dosage: 0.005 MG CONTROLLLED SPRAY, QD AT BEDTIME, ONE SPRAY BOTH NOSTRILS
     Route: 045
     Dates: start: 2010

REACTIONS (3)
  - Drug intolerance [Unknown]
  - Palpitations [Unknown]
  - Respiratory disorder [Unknown]
